FAERS Safety Report 10079081 (Version 1)
Quarter: 2014Q2

REPORT INFORMATION
  Report Type: Spontaneous
  Country: US (occurrence: US)
  Receive Date: 20140415
  Receipt Date: 20140415
  Transmission Date: 20141212
  Serious: Yes (Hospitalization)
  Sender: FDA-Public Use
  Company Number: US-PFIZER INC-2014101964

PATIENT
  Age: 53 Year
  Sex: Female

DRUGS (11)
  1. ATENOLOL [Suspect]
     Dosage: UNK
     Route: 065
  2. MORPHINE SULFATE [Suspect]
     Dosage: UNK
     Route: 065
  3. DICYCLOVERINE [Concomitant]
     Dosage: UNK
     Route: 065
  4. ATORVASTATIN CALCIUM [Concomitant]
     Dosage: UNK
     Route: 065
  5. ATROPINE W/DIPHENOXYLATE [Concomitant]
     Dosage: UNK
     Route: 065
  6. LOSARTAN [Concomitant]
     Dosage: UNK
     Route: 065
  7. HYDROCODONE W/PARACETAMOL [Concomitant]
     Dosage: UNK
     Route: 065
  8. POTASSIUM CHLORIDE [Concomitant]
     Dosage: UNK
     Route: 065
  9. ENOXAPARIN [Concomitant]
     Dosage: UNK
     Route: 065
  10. PANTOPRAZOLE [Concomitant]
     Dosage: UNK
     Route: 065
  11. DOCUSATE SODIUM [Concomitant]
     Dosage: UNK
     Route: 065

REACTIONS (4)
  - Abdominal pain [Recovering/Resolving]
  - Dehydration [Recovered/Resolved]
  - Nausea [Recovered/Resolved]
  - Vomiting [Recovered/Resolved]
